FAERS Safety Report 13356545 (Version 4)
Quarter: 2017Q2

REPORT INFORMATION
  Report Type: Report from Study
  Country: US (occurrence: US)
  Receive Date: 20170321
  Receipt Date: 20170511
  Transmission Date: 20170830
  Serious: Yes (Death, Hospitalization, Other)
  Sender: FDA-Public Use
  Company Number: US-ALEXION PHARMACEUTICALS INC.-A201702685

PATIENT
  Sex: Male

DRUGS (2)
  1. SOLIRIS [Suspect]
     Active Substance: ECULIZUMAB
     Indication: PAROXYSMAL NOCTURNAL HAEMOGLOBINURIA
     Dosage: UNK
     Route: 042
  2. COUMADIN [Suspect]
     Active Substance: WARFARIN SODIUM
     Indication: PRODUCT USED FOR UNKNOWN INDICATION
     Dosage: UNK
     Route: 065

REACTIONS (11)
  - Blood creatinine increased [Unknown]
  - Hypotension [Unknown]
  - Blood iron increased [Unknown]
  - Renal failure [Fatal]
  - Blood urine present [Unknown]
  - Haemolysis [Unknown]
  - Blood lactate dehydrogenase increased [Unknown]
  - Cerebrovascular accident [Unknown]
  - Hepatic cirrhosis [Unknown]
  - Drug level increased [Unknown]
  - Anaemia [Unknown]

NARRATIVE: CASE EVENT DATE: 20170324
